FAERS Safety Report 9527883 (Version 1)
Quarter: 2013Q3

REPORT INFORMATION
  Report Type: Spontaneous
  Country: US (occurrence: US)
  Receive Date: 20130917
  Receipt Date: 20130917
  Transmission Date: 20140515
  Serious: No
  Sender: FDA-Public Use
  Company Number: US-PFIZER INC-2013265661

PATIENT
  Age: 26 Year
  Sex: Male
  Weight: 81.6 kg

DRUGS (2)
  1. ZOLOFT [Suspect]
     Dosage: 12.5 MG, UNK (1/2 OF 25 MG)
     Dates: start: 20130912
  2. KLONOPIN [Suspect]
     Dosage: 2 MG, 4X/DAY
     Dates: start: 20130912

REACTIONS (2)
  - Influenza like illness [Not Recovered/Not Resolved]
  - Eye irritation [Not Recovered/Not Resolved]
